FAERS Safety Report 22590864 (Version 1)
Quarter: 2023Q2

REPORT INFORMATION
  Report Type: Spontaneous
  Country: US (occurrence: None)
  Receive Date: 20230609
  Receipt Date: 20230609
  Transmission Date: 20230722
  Serious: No
  Sender: FDA-Public Use
  Company Number: None

PATIENT
  Age: 20 Year
  Sex: Male

DRUGS (3)
  1. TALTZ [Suspect]
     Active Substance: IXEKIZUMAB
     Indication: Juvenile spondyloarthritis
     Dosage: FREQUENCY : MONTHLY;?
     Route: 058
     Dates: start: 202208
  2. TALTZ [Suspect]
     Active Substance: IXEKIZUMAB
     Indication: Sacroiliitis
  3. TALTZ [Suspect]
     Active Substance: IXEKIZUMAB
     Indication: Ankylosing spondylitis

REACTIONS (2)
  - Nasopharyngitis [None]
  - Sinusitis [None]
